FAERS Safety Report 8382816-2 (Version None)
Quarter: 2012Q2

REPORT INFORMATION
  Report Type: 
  Country: None (occurrence: None)
  Receive Date: 20120524
  Receipt Date: 20120515
  Transmission Date: 20120825
  Serious: Yes (Hospitalization)
  Sender: FDA-Public Use
  Company Number: FR-JNJFOC-20120509126

PATIENT
  Sex: Female
  Weight: 119 kg

DRUGS (4)
  1. PALIPERIDONE [Suspect]
     Route: 030
     Dates: start: 20110328, end: 20120312
  2. PALIPERIDONE [Suspect]
     Route: 030
     Dates: end: 20120504
  3. PALIPERIDONE [Suspect]
     Indication: SCHIZOPHRENIA
     Route: 030
     Dates: start: 20110225
  4. PALIPERIDONE [Suspect]
     Route: 030
     Dates: start: 20110218

REACTIONS (4)
  - EXTRAPYRAMIDAL DISORDER [None]
  - DRY MOUTH [None]
  - TREMOR [None]
  - CONDITION AGGRAVATED [None]
